FAERS Safety Report 13109750 (Version 1)
Quarter: 2017Q1

REPORT INFORMATION
  Report Type: Spontaneous
  Country: US (occurrence: US)
  Receive Date: 20170112
  Receipt Date: 20170112
  Transmission Date: 20170428
  Serious: Yes (Other)
  Sender: FDA-Public Use
  Company Number: US-ROCHE-1100598

PATIENT
  Age: 62 Year
  Sex: Male

DRUGS (8)
  1. UROKINASE [Concomitant]
     Active Substance: UROKINASE
     Dosage: 80 MCG /HR
     Route: 065
  2. NITROGLYCERIN. [Concomitant]
     Active Substance: NITROGLYCERIN
     Route: 041
  3. ASPIRIN. [Concomitant]
     Active Substance: ASPIRIN
     Route: 042
  4. ACTIVASE [Suspect]
     Active Substance: ALTEPLASE
     Indication: ACUTE MYOCARDIAL INFARCTION
     Dosage: OVER 3 MIN
     Route: 042
     Dates: start: 19900223
  5. MORPHINE [Concomitant]
     Active Substance: MORPHINE
     Dosage: 2-5
     Route: 042
  6. BENADRYL [Concomitant]
     Active Substance: DIPHENHYDRAMINE HYDROCHLORIDE
     Route: 065
  7. LIDOCAINE. [Concomitant]
     Active Substance: LIDOCAINE
     Route: 041
  8. SOLU-MEDROL [Concomitant]
     Active Substance: METHYLPREDNISOLONE SODIUM SUCCINATE
     Route: 065

REACTIONS (2)
  - Reperfusion arrhythmia [Unknown]
  - Hypotension [Unknown]

NARRATIVE: CASE EVENT DATE: 19900223
